FAERS Safety Report 8428903-1 (Version None)
Quarter: 2012Q2

REPORT INFORMATION
  Report Type: 
  Country: None (occurrence: None)
  Receive Date: 20120612
  Receipt Date: 20120530
  Transmission Date: 20120825
  Serious: Yes (Hospitalization, Disabling, Other)
  Sender: FDA-Public Use
  Company Number: US-SHIRE-ALL1-2012-01861

PATIENT
  Sex: Male
  Weight: 81.633 kg

DRUGS (5)
  1. CARBATROL [Suspect]
     Indication: EPILEPSY
     Dosage: 200 MG, 4X/DAY:QID
     Route: 048
     Dates: start: 20050101, end: 20120101
  2. PHENOBARBITAL TAB [Concomitant]
     Dosage: UNK, UNKNOWN
     Route: 048
  3. PHENOBARBITAL TAB [Concomitant]
     Indication: EPILEPSY
     Dosage: UNK, UNKNOWN
     Route: 048
     Dates: start: 19640101
  4. LAMICTAL [Concomitant]
     Indication: EPILEPSY
     Dosage: UNK, UNKNOWN
     Route: 048
     Dates: start: 20050101
  5. LAMICTAL [Concomitant]
     Dosage: UNK UNK, UNKNOWN
     Route: 048

REACTIONS (4)
  - INAPPROPRIATE SCHEDULE OF DRUG ADMINISTRATION [None]
  - ADVERSE EVENT [None]
  - ATONIC SEIZURES [None]
  - GAIT DISTURBANCE [None]
